FAERS Safety Report 4380781-6 (Version None)
Quarter: 2004Q2

REPORT INFORMATION
  Report Type: 
  Country: None (occurrence: None)
  Receive Date: 20040616
  Receipt Date: 20040527
  Transmission Date: 20050107
  Serious: Yes (Death, Other)
  Sender: FDA-Public Use
  Company Number: JP_040403038

PATIENT
  Age: 55 Year
  Sex: Male
  Weight: 57 kg

DRUGS (7)
  1. ZYPREXA [Suspect]
     Indication: SCHIZOPHRENIA
     Dosage: 30 MG DAY
     Dates: start: 20030720
  2. LORAZEPAM [Concomitant]
  3. CARBAMAZEPINE [Concomitant]
  4. CHLORPROMAZINE [Concomitant]
  5. LEVOTOMIN (LEVOMEPROMAZINE MALEATE) [Concomitant]
  6. ALOSENN [Concomitant]
  7. SEROQUEL [Concomitant]

REACTIONS (6)
  - DELUSION [None]
  - DIET REFUSAL [None]
  - HALLUCINATION [None]
  - PRESCRIBED OVERDOSE [None]
  - REFUSAL OF TREATMENT BY PATIENT [None]
  - STUPOR [None]
